FAERS Safety Report 18298531 (Version 1)
Quarter: 2020Q3

REPORT INFORMATION
  Report Type: Spontaneous
  Country: DE (occurrence: DE)
  Receive Date: 20200922
  Receipt Date: 20200922
  Transmission Date: 20201103
  Serious: Yes (Disabling)
  Sender: FDA-Public Use
  Company Number: DE-ASCEND THERAPEUTICS US, LLC-2091037

PATIENT
  Age: 58 Year
  Sex: Female
  Weight: 70 kg

DRUGS (3)
  1. GYNOKADIN (ESTRADIOL HEMIHYDRATE) [Suspect]
     Active Substance: ESTRADIOL
     Route: 065
     Dates: start: 200705, end: 202007
  2. ESTROGEL [Suspect]
     Active Substance: ESTRADIOL
     Indication: MENOPAUSAL SYMPTOMS
     Route: 065
     Dates: start: 200705, end: 202007
  3. ESTROGEL [Suspect]
     Active Substance: ESTRADIOL

REACTIONS (2)
  - Spinal meningioma benign [Unknown]
  - Language disorder [Unknown]

NARRATIVE: CASE EVENT DATE: 202006
